FAERS Safety Report 9399731 (Version 2)
Quarter: 2013Q3

REPORT INFORMATION
  Report Type: Report from Study
  Country: US (occurrence: US)
  Receive Date: 20130715
  Receipt Date: 20130719
  Transmission Date: 20140515
  Serious: Yes (Hospitalization)
  Sender: FDA-Public Use
  Company Number: US-JNJFOC-20130702352

PATIENT
  Age: 15 Year
  Sex: Female
  Weight: 47.4 kg

DRUGS (1)
  1. REMICADE [Suspect]
     Indication: CROHN^S DISEASE
     Route: 042
     Dates: start: 201208

REACTIONS (2)
  - Sepsis [Recovered/Resolved]
  - Clostridium difficile infection [Recovered/Resolved]
